FAERS Safety Report 5546064-3 (Version None)
Quarter: 2007Q4

REPORT INFORMATION
  Report Type: 
  Country: None (occurrence: None)
  Receive Date: 20071211
  Receipt Date: 20070914
  Transmission Date: 20080405
  Serious: No
  Sender: FDA-Public Use
  Company Number: US-BRISTOL-MYERS SQUIBB COMPANY-13909494

PATIENT
  Age: 42 Year
  Sex: Female
  Weight: 107 kg

DRUGS (6)
  1. EMSAM [Suspect]
     Indication: BIPOLAR I DISORDER
     Route: 062
     Dates: start: 20070912
  2. TOPAMAX [Concomitant]
  3. XANAX [Concomitant]
  4. FISH OIL [Concomitant]
  5. ASCORBIC ACID [Concomitant]
  6. VITAMIN B COMPLEX CAP [Concomitant]

REACTIONS (2)
  - DRUG INEFFECTIVE [None]
  - FATIGUE [None]
